FAERS Safety Report 5264767-5 (Version None)
Quarter: 2007Q1

REPORT INFORMATION
  Report Type: 
  Country: None (occurrence: None)
  Receive Date: 20070313
  Receipt Date: 20070228
  Transmission Date: 20070707
  Serious: Yes (Other)
  Sender: FDA-Public Use
  Company Number: PHNR2007AU00802

PATIENT
  Age: 29 Year
  Sex: Female

DRUGS (2)
  1. SYNTOCINON [Concomitant]
     Dosage: 10 UNIT NOT PROVIDED
     Dates: start: 20061105
  2. VOLTAREN [Suspect]
     Dosage: 100 MG, ONCE/SINGLE
     Route: 054
     Dates: start: 20061105

REACTIONS (4)
  - DYSPHAGIA [None]
  - LIP SWELLING [None]
  - PHARYNGOLARYNGEAL PAIN [None]
  - SPEECH DISORDER [None]
